FAERS Safety Report 4360875-1 (Version None)
Quarter: 2004Q2

REPORT INFORMATION
  Report Type: 
  Country: None (occurrence: None)
  Receive Date: 20040519
  Receipt Date: 20040519
  Transmission Date: 20050107
  Serious: Yes (Other)
  Sender: FDA-Public Use
  Company Number: None

PATIENT
  Age: 70 Year
  Sex: Male

DRUGS (1)
  1. TESTOSTERONE [Suspect]
     Indication: HYPOGONADISM
     Dosage: INJ THEN GEL
     Dates: start: 20030801, end: 20040101

REACTIONS (3)
  - ATROPHY [None]
  - GYNAECOMASTIA [None]
  - PENIS DISORDER [None]
